FAERS Safety Report 12467610 (Version 1)
Quarter: 2016Q2

REPORT INFORMATION
  Report Type: Report from Study
  Country: IN (occurrence: IN)
  Receive Date: 20160615
  Receipt Date: 20160615
  Transmission Date: 20160815
  Serious: Yes (Hospitalization)
  Sender: FDA-Public Use
  Company Number: IN-SUN PHARMACEUTICAL INDUSTRIES LTD-2016R1-117986

PATIENT
  Age: 55 Year
  Sex: Female
  Weight: 96 kg

DRUGS (13)
  1. ATORVASTATIN [Suspect]
     Active Substance: ATORVASTATIN
     Indication: DYSLIPIDAEMIA
     Dosage: 1 DF, QD
     Route: 048
     Dates: start: 20160410
  2. NITROFURANTOIN. [Concomitant]
     Active Substance: NITROFURANTOIN
     Indication: ANTIBIOTIC THERAPY
     Dosage: 100 MG, BID
     Route: 048
     Dates: start: 20160527, end: 20160531
  3. NEBIVOLOL. [Concomitant]
     Active Substance: NEBIVOLOL
     Indication: HYPERTENSION
     Dosage: 01 DF, QD
     Route: 048
     Dates: start: 20160331
  4. FORMOTEROL FUMARATE, BECLOMETASONE DIPROPIONATE [Concomitant]
     Indication: ASTHMA
     Dosage: 1 DF, BID
     Route: 055
     Dates: start: 20160323
  5. HEMANTINIC/FOLIC ACID [Concomitant]
     Indication: MINERAL SUPPLEMENTATION
     Dosage: UNK, QD (HS)
     Route: 048
     Dates: start: 20160606
  6. FUROSEMIDE, SPIRONOLACTONE [Concomitant]
     Active Substance: FUROSEMIDE
     Indication: DIURETIC THERAPY
     Dosage: 0.5 DF, QD
     Route: 048
     Dates: start: 20160323
  7. DOMPERIDONE [Concomitant]
     Active Substance: DOMPERIDONE
     Indication: VOMITING
     Dosage: 1 DF, BID
     Route: 048
     Dates: start: 20160527, end: 20160531
  8. PARACETAMOL, DICYCLOVERINE [Concomitant]
     Indication: MUSCLE SPASMS
     Dosage: 1 DF, TID
     Route: 048
     Dates: start: 20160527, end: 20160531
  9. RABEPRAZOLE [Concomitant]
     Active Substance: RABEPRAZOLE
     Indication: ANTACID THERAPY
     Dosage: 20 MG, BID
     Route: 048
     Dates: start: 20160527, end: 20160531
  10. A TO Z [Concomitant]
     Indication: VITAMIN SUPPLEMENTATION
     Dosage: UNK UNK, QD
     Route: 048
     Dates: start: 20160606
  11. VITAMIN D3 [Suspect]
     Active Substance: CHOLECALCIFEROL
  12. DISODIUM HYDROGEN CITRATE [Concomitant]
     Active Substance: DISODIUM HYDROGEN CITRATE
     Indication: URINE ALKALINISATION THERAPY
     Dosage: 10 ML, TID
     Route: 048
     Dates: start: 20160527, end: 20160531
  13. PARACETAMOL, DICYCLOVERINE [Concomitant]
     Indication: ANALGESIC THERAPY

REACTIONS (1)
  - Renal colic [Recovered/Resolved with Sequelae]

NARRATIVE: CASE EVENT DATE: 20160528
